FAERS Safety Report 9274418 (Version 2)
Quarter: 2013Q2

REPORT INFORMATION
  Report Type: Spontaneous
  Country: DE (occurrence: DE)
  Receive Date: 20130506
  Receipt Date: 20130508
  Transmission Date: 20140414
  Serious: Yes (Death)
  Sender: FDA-Public Use
  Company Number: DE-TEVA-403213USA

PATIENT
  Age: 85 Year
  Sex: Male

DRUGS (4)
  1. TREANDA [Suspect]
     Indication: B-CELL SMALL LYMPHOCYTIC LYMPHOMA
     Route: 042
     Dates: start: 201206, end: 201301
  2. L-THYROXINE [Concomitant]
     Route: 048
  3. KARVEZIDE [Concomitant]
     Dosage: 150/12.5 MG
     Route: 048
  4. CARMEN [Concomitant]
     Dosage: 10 MILLIGRAM DAILY;
     Route: 048

REACTIONS (2)
  - Acute hepatic failure [Fatal]
  - Hepatitis B [Fatal]
